FAERS Safety Report 6525221-3 (Version None)
Quarter: 2010Q1

REPORT INFORMATION
  Report Type: 
  Country: None (occurrence: None)
  Receive Date: 20100104
  Receipt Date: 20091228
  Transmission Date: 20100710
  Serious: Yes (Hospitalization)
  Sender: FDA-Public Use
  Company Number: RS-B.I. PHARMACEUTICALS,INC./RIDGEFIELD-2009-AP-00408AP

PATIENT
  Age: 57 Year
  Sex: Female
  Weight: 80 kg

DRUGS (1)
  1. MOVALIS [Suspect]
     Dosage: 15 MG
     Route: 048
     Dates: start: 20090930, end: 20091003

REACTIONS (3)
  - SKIN ULCER [None]
  - TELANGIECTASIA [None]
  - VASCULITIS [None]
